FAERS Safety Report 23943545 (Version 2)
Quarter: 2024Q3

REPORT INFORMATION
  Report Type: Report from Study
  Country: US (occurrence: US)
  Receive Date: 20240606
  Receipt Date: 20240702
  Transmission Date: 20241016
  Serious: Yes (Other)
  Sender: ABBVIE
  Company Number: US-ABBVIE-5785827

PATIENT
  Age: 46 Year
  Sex: Male
  Weight: 86 kg

DRUGS (2)
  1. HUMIRA [Suspect]
     Active Substance: ADALIMUMAB
     Indication: Uveitis
     Dosage: FORM STRENGTH: 40MG/0.4ML, CITRATE FREE
     Route: 058
     Dates: start: 20200807
  2. HUMIRA [Suspect]
     Active Substance: ADALIMUMAB
     Dosage: FORM STRENGTH: 40MG/0.4ML, CITRATE FREE
     Route: 058
     Dates: start: 20200807

REACTIONS (7)
  - Medical device implantation [Recovering/Resolving]
  - Procedural pain [Recovering/Resolving]
  - Migraine [Recovered/Resolved]
  - Gingival pain [Recovering/Resolving]
  - Post procedural complication [Unknown]
  - Retinal artery occlusion [Recovering/Resolving]
  - Post procedural inflammation [Recovering/Resolving]

NARRATIVE: CASE EVENT DATE: 20240513
